FAERS Safety Report 12493737 (Version 1)
Quarter: 2016Q2

REPORT INFORMATION
  Report Type: Spontaneous
  Country: PK (occurrence: PK)
  Receive Date: 20160623
  Receipt Date: 20160623
  Transmission Date: 20160815
  Serious: Yes (Life-Threatening)
  Sender: FDA-Public Use
  Company Number: PK-PFIZER INC-2016307042

PATIENT
  Sex: Male
  Weight: 10 kg

DRUGS (1)
  1. ATRACURIUM BESILATE [Suspect]
     Active Substance: ATRACURIUM BESYLATE
     Indication: ANAESTHESIA
     Dosage: 0.5 MG, 1X/DAY
     Route: 042

REACTIONS (2)
  - Drug ineffective [Unknown]
  - Aspiration [Unknown]
